FAERS Safety Report 7123975-9 (Version None)
Quarter: 2010Q4

REPORT INFORMATION
  Report Type: 
  Country: None (occurrence: None)
  Receive Date: 20101126
  Receipt Date: 20101119
  Transmission Date: 20110411
  Serious: No
  Sender: FDA-Public Use
  Company Number: US-PFIZER INC-2010137137

PATIENT
  Sex: Male
  Weight: 100 kg

DRUGS (7)
  1. TIKOSYN [Suspect]
     Indication: ATRIAL FIBRILLATION
     Dosage: 500 UG, 2X/DAY
     Route: 048
     Dates: start: 20030601
  2. TIKOSYN [Suspect]
     Indication: HEART RATE IRREGULAR
  3. TIKOSYN [Suspect]
     Indication: HEART RATE INCREASED
  4. TIKOSYN [Suspect]
     Indication: TACHYCARDIA
  5. LISINOPRIL [Concomitant]
     Dosage: 10 MG, UNK
  6. METOPROLOL [Concomitant]
     Dosage: 100 MG, 3X/DAY
  7. WARFARIN [Concomitant]
     Dosage: UNK

REACTIONS (4)
  - ALLERGIC SINUSITIS [None]
  - HEART RATE IRREGULAR [None]
  - HYPERSENSITIVITY [None]
  - RHINITIS SEASONAL [None]
